FAERS Safety Report 5040862-0 (Version None)
Quarter: 2006Q2

REPORT INFORMATION
  Report Type: 
  Country: None (occurrence: None)
  Receive Date: 20060601
  Receipt Date: 20060303
  Transmission Date: 20061013
  Serious: No
  Sender: FDA-Public Use
  Company Number: 2006PV009639

PATIENT
  Age: 45 Year
  Sex: Female
  Weight: 81.6475 kg

DRUGS (5)
  1. BYETTA [Suspect]
     Indication: DIABETES MELLITUS
     Dosage: 5 MCG;BID;SC
     Route: 058
     Dates: start: 20051101
  2. GLYBURIDE AND METFORMIN HCL [Concomitant]
  3. METFORMIN [Concomitant]
  4. COZAAR [Concomitant]
  5. LASIX [Concomitant]

REACTIONS (2)
  - NAUSEA [None]
  - OEDEMA PERIPHERAL [None]
